FAERS Safety Report 8226615-0 (Version None)
Quarter: 2012Q1

REPORT INFORMATION
  Report Type: 
  Country: None (occurrence: None)
  Receive Date: 20120322
  Receipt Date: 20120312
  Transmission Date: 20120608
  Serious: No
  Sender: FDA-Public Use
  Company Number: US-BIOGENIDEC-2012BI009505

PATIENT
  Sex: Female

DRUGS (3)
  1. AVONEX [Concomitant]
     Indication: MULTIPLE SCLEROSIS
     Route: 030
  2. TYSABRI [Suspect]
     Indication: MULTIPLE SCLEROSIS
     Route: 042
     Dates: start: 20100612, end: 20100710
  3. TYSABRI [Suspect]
     Route: 042
     Dates: start: 20120123

REACTIONS (4)
  - ARTHROPATHY [None]
  - DISTURBANCE IN ATTENTION [None]
  - PAIN [None]
  - DISORIENTATION [None]
